FAERS Safety Report 8848999 (Version 1)
Quarter: 2012Q4

REPORT INFORMATION
  Report Type: Spontaneous
  Country: BR (occurrence: None)
  Receive Date: 20121016
  Receipt Date: 20121016
  Transmission Date: 20130627
  Serious: Yes (Other)
  Sender: FDA-Public Use
  Company Number: 2012-4649

PATIENT
  Age: 45 Year
  Sex: Female

DRUGS (3)
  1. DYSPORT [Suspect]
     Dosage: 150 units (150 Units  1 in 1 cycle(s))
     Route: 030
     Dates: start: 20120919, end: 20120919
  2. DYSPORT [Suspect]
     Indication: WRINKLES
     Dosage: 150 units (150 Units  1 in 1 cycle(s))
     Route: 030
     Dates: start: 20120919, end: 20120919
  3. DYSPORT [Suspect]
     Dosage: 150 units (150 Units  1 in 1 cycle(s))
     Route: 030
     Dates: start: 20120919, end: 20120919

REACTIONS (1)
  - VIIth nerve paralysis [None]
